FAERS Safety Report 12442897 (Version 1)
Quarter: 2016Q2

REPORT INFORMATION
  Report Type: Spontaneous
  Country: US (occurrence: None)
  Receive Date: 20160606
  Receipt Date: 20160606
  Transmission Date: 20160815
  Serious: Yes (Life-Threatening, Disabling, Other)
  Sender: FDA-Public Use
  Company Number: None

PATIENT
  Age: 71 Year
  Sex: Male
  Weight: 86.18 kg

DRUGS (8)
  1. ATORVASTATI 10 MG TAB LEG, 10 MG PFIZER PACKAGED BY L;EGACY PHARMACE [Suspect]
     Active Substance: ATORVASTATIN
     Indication: BLOOD CHOLESTEROL ABNORMAL
     Dosage: 28 TABLET(S) ONCE A DAY TAKEN BY MOUTH
     Route: 048
     Dates: start: 20160329, end: 20160425
  2. OMEPRAZOLE. [Concomitant]
     Active Substance: OMEPRAZOLE
  3. COENZYME Q10 [Concomitant]
     Active Substance: UBIDECARENONE
  4. ACYCLOVIR. [Concomitant]
     Active Substance: ACYCLOVIR
  5. LIPITOR [Concomitant]
     Active Substance: ATORVASTATIN CALCIUM
  6. ASPIRIN. [Concomitant]
     Active Substance: ASPIRIN
  7. VITAMIN D [Concomitant]
     Active Substance: CHOLECALCIFEROL
  8. ZOCOR [Concomitant]
     Active Substance: SIMVASTATIN

REACTIONS (2)
  - Amyotrophic lateral sclerosis [None]
  - Product quality issue [None]

NARRATIVE: CASE EVENT DATE: 20160329
